FAERS Safety Report 23581033 (Version 1)
Quarter: 2024Q1

REPORT INFORMATION
  Report Type: Spontaneous
  Country: IT (occurrence: IT)
  Receive Date: 20240229
  Receipt Date: 20240229
  Transmission Date: 20240410
  Serious: Yes (Other)
  Sender: FDA-Public Use
  Company Number: None

PATIENT
  Age: 85 Year
  Sex: Male
  Weight: 73 kg

DRUGS (1)
  1. BAVENCIO [Suspect]
     Active Substance: AVELUMAB
     Indication: Transitional cell cancer of renal pelvis and ureter metastatic
     Route: 042
     Dates: start: 20230330, end: 20231214

REACTIONS (1)
  - Skin reaction [Recovered/Resolved]

NARRATIVE: CASE EVENT DATE: 20231214
